FAERS Safety Report 8202880-0 (Version None)
Quarter: 2012Q1

REPORT INFORMATION
  Report Type: 
  Country: None (occurrence: None)
  Receive Date: 20120312
  Receipt Date: 20120312
  Transmission Date: 20120608
  Serious: Yes (Life-Threatening)
  Sender: FDA-Public Use
  Company Number: None

PATIENT
  Sex: Female
  Weight: 58.513 kg

DRUGS (3)
  1. FLUTICASONE PROPIONATE [Suspect]
     Indication: COUGH
     Dosage: 50.0 MG
     Route: 045
     Dates: start: 20120309, end: 20120310
  2. FLUTICASONE PROPIONATE [Suspect]
     Indication: THROAT IRRITATION
     Dosage: 50.0 MG
     Route: 045
     Dates: start: 20120309, end: 20120310
  3. FLUTICASONE PROPIONATE [Suspect]
     Indication: LARYNGITIS
     Dosage: 50.0 MG
     Route: 045
     Dates: start: 20120309, end: 20120310

REACTIONS (2)
  - OROPHARYNGEAL PAIN [None]
  - DYSPHAGIA [None]
